FAERS Safety Report 10104022 (Version 1)
Quarter: 2014Q2

REPORT INFORMATION
  Report Type: Spontaneous
  Country: DK (occurrence: GB)
  Receive Date: 20140424
  Receipt Date: 20140424
  Transmission Date: 20141212
  Serious: Yes (Other)
  Sender: FDA-Public Use
  Company Number: GB-FRI-1000066807

PATIENT
  Sex: Female

DRUGS (3)
  1. CITALOPRAM [Suspect]
     Indication: DEPRESSION
     Dosage: 30 MG
     Route: 048
  2. CITALOPRAM [Suspect]
     Dosage: 20 MG DAILY
     Route: 048
  3. CLOZAPINE [Suspect]

REACTIONS (1)
  - Electrocardiogram T wave inversion [Unknown]
